FAERS Safety Report 6772411-0 (Version None)
Quarter: 2010Q2

REPORT INFORMATION
  Report Type: 
  Country: None (occurrence: None)
  Receive Date: 20100616
  Receipt Date: 20090714
  Transmission Date: 20101027
  Serious: No
  Sender: FDA-Public Use
  Company Number: US-ASTRAZENECA-2009UW19701

PATIENT
  Age: 71 Year
  Sex: Male
  Weight: 71.2 kg

DRUGS (3)
  1. PULMICORT FLEXHALER [Suspect]
     Indication: ASTHMA
     Route: 055
  2. METFORMIN [Concomitant]
     Indication: DIABETES MELLITUS
  3. ALBUTEROL [Concomitant]

REACTIONS (3)
  - DYSPHONIA [None]
  - EYE DISORDER [None]
  - WHEEZING [None]
